FAERS Safety Report 16759008 (Version 1)
Quarter: 2019Q3

REPORT INFORMATION
  Report Type: Spontaneous
  Country: FR (occurrence: FR)
  Receive Date: 20190830
  Receipt Date: 20190830
  Transmission Date: 20191005
  Serious: Yes (Life-Threatening)
  Sender: FDA-Public Use
  Company Number: PHHY2019FR200376

PATIENT
  Age: 3 Day
  Sex: Female
  Weight: 2.5 kg

DRUGS (2)
  1. QUETIAPINE. [Suspect]
     Active Substance: QUETIAPINE
     Indication: EXPOSURE VIA BREAST MILK
     Dosage: MOTHER DOSE: 300 MG, UNK (LP)
     Route: 063
  2. SERESTA [Suspect]
     Active Substance: OXAZEPAM
     Indication: EXPOSURE VIA BREAST MILK
     Dosage: MOTHER DOSE: 30 MG, QD
     Route: 063
     Dates: start: 20190413, end: 20190415

REACTIONS (4)
  - Hypoxia [Recovered/Resolved]
  - Bradypnoea [Recovered/Resolved]
  - Somnolence [Recovered/Resolved]
  - Hypoventilation [Recovered/Resolved]

NARRATIVE: CASE EVENT DATE: 20190415
